FAERS Safety Report 7129230-5 (Version None)
Quarter: 2010Q4

REPORT INFORMATION
  Report Type: 
  Country: None (occurrence: None)
  Receive Date: 20101116
  Receipt Date: 20101109
  Transmission Date: 20110411
  Serious: Yes (Hospitalization)
  Sender: FDA-Public Use
  Company Number: 2009SP023505

PATIENT
  Age: 27 Year
  Sex: Female
  Weight: 129.2752 kg

DRUGS (3)
  1. NUVARING [Suspect]
     Indication: CONTRACEPTION
     Dosage: 1 DF;
     Dates: start: 20080822, end: 20080912
  2. EFFEXOR XR [Concomitant]
  3. MIRALAX [Concomitant]

REACTIONS (6)
  - AORTIC VALVE SCLEROSIS [None]
  - CONVULSION [None]
  - DYSPNOEA [None]
  - MENTAL DISORDER [None]
  - SUBCUTANEOUS HAEMATOMA [None]
  - TRANSIENT ISCHAEMIC ATTACK [None]
